FAERS Safety Report 8961440 (Version 1)
Quarter: 2012Q4

REPORT INFORMATION
  Report Type: 
  Country: US (occurrence: US)
  Receive Date: 20121213
  Receipt Date: 20121213
  Transmission Date: 20130627
  Serious: Yes (Hospitalization)
  Sender: FDA-Public Use
  Company Number: US-JNJFOC-20121201573

PATIENT
  Sex: Female

DRUGS (1)
  1. SIMPONI [Suspect]
     Indication: ARTHRITIS
     Route: 058
     Dates: start: 20120316, end: 20120801

REACTIONS (4)
  - Cardiac disorder [Unknown]
  - Oedema peripheral [Unknown]
  - Fatigue [Unknown]
  - Nausea [Unknown]
